FAERS Safety Report 14668142 (Version 1)
Quarter: 2018Q1

REPORT INFORMATION
  Report Type: Spontaneous
  Country: FR (occurrence: FR)
  Receive Date: 20180322
  Receipt Date: 20180322
  Transmission Date: 20180509
  Serious: Yes (Other)
  Sender: FDA-Public Use
  Company Number: FR-AUROBINDO-AUR-APL-2018-014954

PATIENT
  Age: 68 Year
  Sex: Male

DRUGS (2)
  1. OMEPRAZOLE. [Suspect]
     Active Substance: OMEPRAZOLE
     Indication: PROPHYLAXIS AGAINST GASTROINTESTINAL ULCER
     Dosage: 1 DOSAGE FORM, ONCE A DAY
     Route: 048
     Dates: start: 2015
  2. ATENOLOL. [Suspect]
     Active Substance: ATENOLOL
     Indication: ATRIAL FIBRILLATION
     Dosage: 50 MILLIGRAM, ONCE A DAY
     Route: 048
     Dates: start: 201604

REACTIONS (1)
  - Nail pigmentation [Not Recovered/Not Resolved]

NARRATIVE: CASE EVENT DATE: 2017
